FAERS Safety Report 20262445 (Version 3)
Quarter: 2022Q1

REPORT INFORMATION
  Report Type: Report from Study
  Country: US (occurrence: US)
  Receive Date: 20211231
  Receipt Date: 20220221
  Transmission Date: 20220423
  Serious: No
  Sender: FDA-Public Use
  Company Number: US-NOVARTISTESTPH-NVSC2021US299723

PATIENT
  Sex: Female
  Weight: 69.841 kg

DRUGS (4)
  1. TREPROSTINIL [Suspect]
     Active Substance: TREPROSTINIL
     Indication: Pulmonary arterial hypertension
     Dosage: 21 NG/KG/MIN, CONT
     Route: 042
     Dates: start: 20211130
  2. TREPROSTINIL [Suspect]
     Active Substance: TREPROSTINIL
     Dosage: 34.5 NG/KG/MIN, CONT
     Route: 042
  3. TREPROSTINIL [Suspect]
     Active Substance: TREPROSTINIL
     Dosage: UNK
     Route: 065
  4. OPSUMIT [Concomitant]
     Active Substance: MACITENTAN
     Indication: Product used for unknown indication
     Dosage: UNK
     Route: 065

REACTIONS (10)
  - Myalgia [Unknown]
  - Migraine [Unknown]
  - Sinusitis [Unknown]
  - Dyspnoea [Unknown]
  - Nausea [Unknown]
  - Musculoskeletal discomfort [Unknown]
  - Device alarm issue [Unknown]
  - Device infusion issue [Unknown]
  - Device issue [Unknown]
  - Product dose omission issue [Unknown]
